FAERS Safety Report 13659233 (Version 1)
Quarter: 2017Q2

REPORT INFORMATION
  Report Type: Spontaneous
  Country: US (occurrence: US)
  Receive Date: 20170616
  Receipt Date: 20170616
  Transmission Date: 20170830
  Serious: Yes (Hospitalization)
  Sender: FDA-Public Use
  Company Number: None

PATIENT
  Age: 67 Year
  Sex: Male
  Weight: 120.4 kg

DRUGS (12)
  1. ELIQUIS [Suspect]
     Active Substance: APIXABAN
     Indication: ATRIAL FIBRILLATION
     Route: 048
  2. ELIQUIS [Suspect]
     Active Substance: APIXABAN
     Indication: ATRIAL FLUTTER
     Route: 048
  3. OXYDONE AND TYLENOL 10/325 ACTAVIS [Concomitant]
     Active Substance: ACETAMINOPHEN\OXYCODONE HYDROCHLORIDE
  4. THIAMINE. [Concomitant]
     Active Substance: THIAMINE
  5. COLACE [Concomitant]
     Active Substance: DOCUSATE SODIUM
  6. FOLVITE [Concomitant]
     Active Substance: FOLIC ACID
  7. COMPAZINE [Concomitant]
     Active Substance: PROCHLORPERAZINE MALEATE
  8. ALDACTONE [Concomitant]
     Active Substance: SPIRONOLACTONE
  9. BUMEX [Concomitant]
     Active Substance: BUMETANIDE
  10. MVI [Concomitant]
     Active Substance: VITAMINS
  11. MAGOX [Concomitant]
  12. KLOR-CON [Concomitant]
     Active Substance: POTASSIUM CHLORIDE

REACTIONS (1)
  - Oesophageal varices haemorrhage [None]

NARRATIVE: CASE EVENT DATE: 20170519
